FAERS Safety Report 8151194-6 (Version None)
Quarter: 2012Q1

REPORT INFORMATION
  Report Type: 
  Country: None (occurrence: None)
  Receive Date: 20120220
  Receipt Date: 20120214
  Transmission Date: 20120608
  Serious: Yes (Hospitalization, Disabling, Other)
  Sender: FDA-Public Use
  Company Number: US-BAYER-200941655NA

PATIENT
  Age: 35 Year
  Sex: Female
  Weight: 49.887 kg

DRUGS (4)
  1. YASMIN [Suspect]
     Indication: CONTRACEPTION
     Dates: start: 20030101, end: 20071201
  2. YAZ [Suspect]
     Indication: CONTRACEPTION
     Dates: start: 20030101, end: 20071201
  3. LEVSIN [Concomitant]
     Indication: IRRITABLE BOWEL SYNDROME
     Dosage: UNK UNK, PRN
  4. ACCUTANE [Concomitant]

REACTIONS (4)
  - PHYSICAL DISABILITY [None]
  - CEREBROVASCULAR ACCIDENT [None]
  - HEMIPARESIS [None]
  - SPEECH DISORDER [None]
